FAERS Safety Report 7913936-1 (Version None)
Quarter: 2011Q4

REPORT INFORMATION
  Report Type: 
  Country: None (occurrence: None)
  Receive Date: 20111115
  Receipt Date: 20111108
  Transmission Date: 20120403
  Serious: Yes (Hospitalization)
  Sender: FDA-Public Use
  Company Number: JP-PFIZER INC-2011273786

PATIENT
  Age: 79 Year
  Sex: Female
  Weight: 76 kg

DRUGS (13)
  1. AMINOLEBAN EN [Concomitant]
     Indication: HEPATIC NEOPLASM MALIGNANT
     Dosage: 50 MG, 1X/DAY
     Route: 048
     Dates: start: 20020104
  2. LIVACT [Concomitant]
     Indication: HEPATIC NEOPLASM MALIGNANT
     Dosage: 3 DF, 3X/DAY
     Route: 048
     Dates: start: 20100525
  3. EPIRUBICIN HYDROCHLORIDE [Suspect]
     Dosage: 60MG
     Dates: start: 20110920
  4. SHAKUYAKUKANZOUTOU [Concomitant]
     Indication: MUSCLE SPASMS
     Dosage: 5 G, 2X/DAY
     Route: 048
     Dates: start: 20020315
  5. RABEPRAZOLE SODIUM [Concomitant]
     Indication: GASTRITIS PROPHYLAXIS
     Dosage: 10 MG, 1X/DAY
     Route: 048
     Dates: start: 20110516
  6. LACTULOSE [Concomitant]
     Indication: HYPERAMMONAEMIA
     Dosage: AS NEEDED, 3X/DAY
     Route: 048
     Dates: start: 20100810
  7. TAURINE [Concomitant]
     Indication: MUSCLE SPASMS
     Dosage: 2.04 G, 2X/DAY
     Route: 048
     Dates: start: 20010910
  8. ALDACTONE [Concomitant]
     Indication: HYPERTENSION
  9. PURSENNID [Concomitant]
     Indication: CONSTIPATION
     Dosage: 24 MG, 1X/DAY
     Route: 048
     Dates: start: 20061110
  10. ALDACTONE [Concomitant]
     Indication: PORTAL HYPERTENSION
     Dosage: 50 MG, 1X/DAY
     Route: 048
     Dates: start: 20011015
  11. EPIRUBICIN HYDROCHLORIDE [Suspect]
     Indication: HEPATIC NEOPLASM MALIGNANT
     Dosage: UNK
     Dates: start: 20100513
  12. HALCION [Concomitant]
     Indication: INSOMNIA
     Dosage: 0.25 MG, 1X/DAY
     Route: 048
     Dates: start: 20071214
  13. MIYA BM [Concomitant]
     Indication: CONSTIPATION
     Dosage: 5 DF, 3X/DAY
     Route: 048
     Dates: start: 20110322

REACTIONS (2)
  - HAEMORRHAGIC ASCITES [None]
  - METASTASES TO PERITONEUM [None]
